FAERS Safety Report 7943506-0 (Version None)
Quarter: 2011Q4

REPORT INFORMATION
  Report Type: 
  Country: None (occurrence: None)
  Receive Date: 20111128
  Receipt Date: 20111122
  Transmission Date: 20120403
  Serious: Yes (Death, Hospitalization)
  Sender: FDA-Public Use
  Company Number: US-AMGEN-USASP2011060100

PATIENT
  Sex: Male

DRUGS (29)
  1. NPLATE [Suspect]
     Indication: IDIOPATHIC THROMBOCYTOPENIC PURPURA
     Dosage: 250 MUG, UNK
     Route: 058
     Dates: start: 20110429, end: 20110525
  2. SODIUM CHLORIDE [Concomitant]
     Dosage: UNK
     Dates: start: 20110418
  3. ALBUTEROL [Concomitant]
     Dosage: 2.5 MG, Q6H
  4. ASCORBIC ACID [Concomitant]
     Dosage: 1000 MG, QD
  5. PRIMAXIN [Concomitant]
     Dosage: 500 MG, Q8H
     Route: 042
  6. HYDROXYPROPYL METHYLCELLULOSE [Concomitant]
  7. FENTANYL [Concomitant]
     Dosage: 2500 MUG, UNK
  8. EPOGEN [Concomitant]
     Dosage: 5000 UNIT, UNK
  9. LISPRO INSULIN [Concomitant]
  10. ALBUMIN (HUMAN) [Concomitant]
     Route: 042
  11. HEPARIN [Concomitant]
     Dosage: 1500 UNIT, UNK
  12. ESOMEPRAZOLE [Concomitant]
     Dosage: 40 MG, UNK
     Dates: start: 20110429
  13. HYDROMORPHONE HCL [Concomitant]
     Dosage: 1.5 MG, Q3H
     Route: 042
  14. URSODIOL [Concomitant]
     Dosage: 250 MG, Q8H
  15. COLISTIMETHATE [Concomitant]
     Dosage: 100 MG, UNK
     Route: 042
  16. MIDODRINE HYDROCHLORIDE [Concomitant]
  17. SANTYL [Concomitant]
     Dosage: 2 UNK, UNK
     Route: 061
     Dates: start: 20110503
  18. IPRATROPIUM BROMIDE [Concomitant]
     Dosage: 0.5 MG, Q6H
  19. TPN                                /06443901/ [Concomitant]
  20. ONDANSETRON [Concomitant]
     Indication: VOMITING
  21. RIFAXIMIN [Concomitant]
     Dosage: 550 MG, Q12H
  22. GLUCAGON [Concomitant]
     Dosage: 1 MG, UNK
  23. DEXTROSE [Concomitant]
     Dosage: 12 G, UNK
  24. MIDAZOLAM [Concomitant]
     Dosage: 5 MG, ONE TIME DOSE
     Route: 042
     Dates: start: 20110502, end: 20110502
  25. ONDANSETRON [Concomitant]
     Indication: NAUSEA
     Dosage: 4 MG, Q8H
  26. MULTIVITAMIN                       /00097801/ [Concomitant]
  27. FOLIC ACID [Concomitant]
     Dosage: 1 MG, QD
     Route: 042
     Dates: start: 20110429
  28. METOCLOPRAMIDE [Concomitant]
     Dosage: 10 MG, Q8H
     Route: 042
  29. ZINC SULFATE [Concomitant]
     Dosage: 220 MG, UNK

REACTIONS (8)
  - URINARY TRACT INFECTION [None]
  - CHOLANGITIS SCLEROSING [None]
  - ASCITES [None]
  - SKIN NECROSIS [None]
  - PLEURAL EFFUSION [None]
  - SHUNT STENOSIS [None]
  - ANORECTAL VARICES HAEMORRHAGE [None]
  - PNEUMONIA KLEBSIELLA [None]
